FAERS Safety Report 24752670 (Version 1)
Quarter: 2024Q4

REPORT INFORMATION
  Report Type: Spontaneous
  Country: US (occurrence: US)
  Receive Date: 20241219
  Receipt Date: 20241219
  Transmission Date: 20250115
  Serious: No
  Sender: PACIRA
  Company Number: US-ORG100016242-2024000298

PATIENT

DRUGS (3)
  1. EXPAREL [Suspect]
     Active Substance: BUPIVACAINE
     Indication: Knee operation
     Route: 050
  2. EXPAREL [Suspect]
     Active Substance: BUPIVACAINE
     Indication: Knee operation
     Route: 050
  3. BUPIVACAINE [Suspect]
     Active Substance: BUPIVACAINE
     Indication: Knee operation
     Route: 050

REACTIONS (2)
  - Extra dose administered [Unknown]
  - No adverse event [Unknown]
